FAERS Safety Report 7438994-2 (Version None)
Quarter: 2011Q2

REPORT INFORMATION
  Report Type: 
  Country: None (occurrence: None)
  Receive Date: 20110427
  Receipt Date: 20110418
  Transmission Date: 20111010
  Serious: Yes (Hospitalization)
  Sender: FDA-Public Use
  Company Number: US-US-EMD SERONO, INC.-232494J10USA

PATIENT
  Sex: Female
  Weight: 92 kg

DRUGS (11)
  1. REBIF [Suspect]
     Indication: MULTIPLE SCLEROSIS
     Route: 058
     Dates: start: 20090101
  2. REBIF [Suspect]
     Route: 058
  3. LYRICA [Concomitant]
     Indication: DEPRESSION
  4. WELLBUTRIN [Concomitant]
     Indication: DEPRESSION
     Dates: start: 20100101
  5. LISINOPRIL [Concomitant]
     Indication: HYPERTENSION
     Dates: start: 20050101
  6. NAPROXEN [Concomitant]
     Indication: PAIN
  7. LYRICA [Concomitant]
     Indication: MULTIPLE SCLEROSIS
     Dates: start: 20030101
  8. DETROL [Concomitant]
     Indication: MICTURITION URGENCY
     Dates: start: 20070101
  9. CATAPRES [Concomitant]
     Indication: HYPERTENSION
     Dates: start: 20110101
  10. MELOXICAM [Concomitant]
     Indication: PAIN
     Dates: start: 20080611
  11. VENTOLIN [Concomitant]

REACTIONS (2)
  - FALL [None]
  - MUSCULAR WEAKNESS [None]
